FAERS Safety Report 5187033-5 (Version None)
Quarter: 2006Q4

REPORT INFORMATION
  Report Type: 
  Country: None (occurrence: None)
  Receive Date: 20061212
  Receipt Date: 20061128
  Transmission Date: 20070319
  Serious: Yes (Other)
  Sender: FDA-Public Use
  Company Number: US-2006-029368

PATIENT
  Age: 48 Year
  Sex: Female
  Weight: 67.1 kg

DRUGS (9)
  1. BETASERON [Suspect]
     Indication: RELAPSING-REMITTING MULTIPLE SCLEROSIS
     Dosage: 2 MIU, EVERY 2D, SUBCUTANEOUS
     Route: 058
     Dates: start: 20060908, end: 20060912
  2. BACLOFEN [Concomitant]
  3. KLONOPIN [Concomitant]
  4. PERCOCET [Concomitant]
  5. FENTANYL [Concomitant]
  6. EFFEXOR XR [Concomitant]
  7. FLORINEF [Concomitant]
  8. LOPRESSOR [Concomitant]
  9. COLACE (DOCUSATE SODIUM) [Concomitant]

REACTIONS (7)
  - ABDOMINAL PAIN [None]
  - BACK PAIN [None]
  - INSOMNIA [None]
  - MENINGITIS ASEPTIC [None]
  - PHARYNGOLARYNGEAL PAIN [None]
  - RELAPSING-REMITTING MULTIPLE SCLEROSIS [None]
  - RETCHING [None]
